FAERS Safety Report 8243246-7 (Version None)
Quarter: 2012Q1

REPORT INFORMATION
  Report Type: 
  Country: None (occurrence: None)
  Receive Date: 20120329
  Receipt Date: 20120326
  Transmission Date: 20120608
  Serious: Yes (Death)
  Sender: FDA-Public Use
  Company Number: ES-B.I. PHARMACEUTICALS,INC./RIDGEFIELD-2012-ES-00094ES

PATIENT
  Sex: Female
  Weight: 50 kg

DRUGS (4)
  1. MICARDIS [Concomitant]
  2. ALPRAZOLAM [Concomitant]
  3. PRADAXA [Suspect]
     Indication: ATRIAL FIBRILLATION
     Dosage: 220 MG
     Route: 048
     Dates: start: 20120109, end: 20120214
  4. SIMVASTATIN [Concomitant]

REACTIONS (3)
  - GASTROINTESTINAL HAEMORRHAGE [None]
  - FOAMING AT MOUTH [None]
  - HAEMATEMESIS [None]
